FAERS Safety Report 21833556 (Version 1)
Quarter: 2023Q1

REPORT INFORMATION
  Report Type: Spontaneous
  Country: US (occurrence: US)
  Receive Date: 20230107
  Receipt Date: 20230107
  Transmission Date: 20230417
  Serious: Yes (Other)
  Sender: FDA-Public Use
  Company Number: US-drreddys-SPO/USA/22/0159312

PATIENT
  Age: 74 Year
  Sex: Male

DRUGS (19)
  1. LENALIDOMIDE [Suspect]
     Active Substance: LENALIDOMIDE
     Indication: Plasma cell myeloma
     Dosage: TAKE 1 CAPSULE BY MOUTH EVERY DAY ON DAYS 1-21 OF A 28 DAY CYCLE
     Route: 048
  2. OMEPRAZOLE [Concomitant]
     Active Substance: OMEPRAZOLE
     Indication: Product used for unknown indication
  3. ONDANSETRON [Concomitant]
     Active Substance: ONDANSETRON
     Indication: Product used for unknown indication
  4. CLOPIDOGREL BISULFATE [Concomitant]
     Active Substance: CLOPIDOGREL BISULFATE
     Indication: Product used for unknown indication
  5. ATORVASTATIN [Concomitant]
     Active Substance: ATORVASTATIN
     Indication: Product used for unknown indication
  6. FINASTERIDE [Concomitant]
     Active Substance: FINASTERIDE
     Indication: Product used for unknown indication
  7. ACETAMINOPHE TAB 500MG [Concomitant]
     Indication: Product used for unknown indication
  8. ACYCLOVIR TAB 800MG [Concomitant]
     Indication: Product used for unknown indication
  9. ALFUZOSIN HC TB2 10MG [Concomitant]
     Indication: Product used for unknown indication
  10. ASPIRIN TBE 81MG [Concomitant]
     Indication: Product used for unknown indication
  11. CALCIUM 600/ TAB 600-10MG [Concomitant]
     Indication: Product used for unknown indication
     Dosage: 600/ TAB 600-10MG
  12. CENTRUM SILV TAB [Concomitant]
     Indication: Product used for unknown indication
  13. COREG TAB 12.5MG [Concomitant]
     Indication: Product used for unknown indication
  14. DEXAMETHASON TAB 6MG [Concomitant]
     Indication: Product used for unknown indication
  15. DIAZEPAM TAB 10MG [Concomitant]
     Indication: Product used for unknown indication
  16. ENALAPRIL MA TA 20MG [Concomitant]
     Indication: Product used for unknown indication
  17. FISH OIL CAP 1200MG [Concomitant]
     Indication: Product used for unknown indication
  18. METAMUCIL FI CHE [Concomitant]
     Indication: Product used for unknown indication
  19. ROPINIROLE H TAB 5MG [Concomitant]
     Indication: Product used for unknown indication

REACTIONS (1)
  - Haemorrhage [Not Recovered/Not Resolved]
